FAERS Safety Report 16304194 (Version 4)
Quarter: 2020Q3

REPORT INFORMATION
  Report Type: Report from Study
  Country: JP (occurrence: JP)
  Receive Date: 20190507
  Receipt Date: 20200918
  Transmission Date: 20201102
  Serious: Yes (Hospitalization)
  Sender: FDA-Public Use
  Company Number: JP-BIOCODEX SA-201800653

PATIENT
  Age: 10 Month
  Sex: Female
  Weight: 5.7 kg

DRUGS (49)
  1. SODIUM VALPROATE [Concomitant]
     Active Substance: VALPROATE SODIUM
     Dosage: 150 MG, QD
     Route: 048
     Dates: start: 20170817, end: 20171011
  2. DORMICUM [Concomitant]
     Dosage: 0.1?0.20 MG/KG/H
     Route: 041
     Dates: start: 20181106, end: 20181110
  3. DORMICUM [Concomitant]
     Dosage: 3ML/H IN 1 HOUR
     Dates: start: 20200624, end: 20200624
  4. CLOBAZAM. [Concomitant]
     Active Substance: CLOBAZAM
     Dosage: 7 MG, QD
     Route: 048
     Dates: start: 20180829, end: 20181218
  5. CLOBAZAM. [Concomitant]
     Active Substance: CLOBAZAM
     Dosage: 8 MG, QD
     Route: 048
     Dates: start: 20181219
  6. DORMICUM [Concomitant]
     Dosage: 2 MG, UNK
     Route: 041
     Dates: start: 20170824, end: 20170825
  7. DORMICUM [Concomitant]
     Dosage: 0.1?0.15MG/KG/H
     Route: 041
     Dates: start: 20190215, end: 20190217
  8. LEVOCARNITINE. [Concomitant]
     Active Substance: LEVOCARNITINE
     Route: 048
  9. DIAZEPAM. [Concomitant]
     Active Substance: DIAZEPAM
     Indication: SEVERE MYOCLONIC EPILEPSY OF INFANCY
     Dosage: 4MG AS NEEDED
     Route: 065
     Dates: start: 20170823, end: 20170823
  10. DIACOMIT [Suspect]
     Active Substance: STIRIPENTOL
     Indication: SEVERE MYOCLONIC EPILEPSY OF INFANCY
     Dosage: 75 MG, QD
     Route: 048
     Dates: start: 20170802, end: 20170816
  11. DIACOMIT [Suspect]
     Active Substance: STIRIPENTOL
     Dosage: 350 MG, QD
     Route: 048
     Dates: start: 20180610, end: 20181001
  12. CLOBAZAM. [Concomitant]
     Active Substance: CLOBAZAM
     Indication: SEVERE MYOCLONIC EPILEPSY OF INFANCY
     Dosage: 3 MG, QD
     Route: 048
     Dates: end: 20170705
  13. CLOBAZAM. [Concomitant]
     Active Substance: CLOBAZAM
     Dosage: 4.5 MG, QD
     Route: 048
     Dates: start: 20170706, end: 20170717
  14. DORMICUM [Concomitant]
     Dosage: 1.4 MG, UNK
     Route: 041
     Dates: start: 20170824, end: 20170824
  15. DORMICUM [Concomitant]
     Dosage: 1 MG, UNK
     Route: 041
     Dates: start: 20180826, end: 20180828
  16. DORMICUM [Concomitant]
     Dosage: 0.1?0.2 MG/KG/H
     Route: 041
     Dates: start: 20180726, end: 20180803
  17. DORMICUM [Concomitant]
     Dosage: 0.1?0.30MG/KG/H
     Route: 041
     Dates: start: 20180925, end: 20180930
  18. CLOBAZAM. [Concomitant]
     Active Substance: CLOBAZAM
     Dosage: 6.5 MG, QD
     Route: 048
     Dates: start: 20170718, end: 20180828
  19. SODIUM VALPROATE [Concomitant]
     Active Substance: VALPROATE SODIUM
     Indication: SEVERE MYOCLONIC EPILEPSY OF INFANCY
     Dosage: 200 MG, QD
     Route: 048
     Dates: end: 20170816
  20. DORMICUM [Concomitant]
     Dosage: 0.1?0.15 MG/KG/H
     Route: 041
     Dates: start: 20181206, end: 20181207
  21. DIACOMIT [Suspect]
     Active Substance: STIRIPENTOL
     Dosage: 100 MG, QD
     Route: 048
     Dates: start: 20170824, end: 20171115
  22. DIACOMIT [Suspect]
     Active Substance: STIRIPENTOL
     Dosage: 275 MG, QD
     Route: 048
     Dates: start: 20180315, end: 20180418
  23. DIACOMIT [Suspect]
     Active Substance: STIRIPENTOL
     Dosage: 325 MG, QD
     Route: 048
     Dates: start: 20180419, end: 20180609
  24. DIACOMIT [Suspect]
     Active Substance: STIRIPENTOL
     Dosage: 450 MG, QD
     Route: 048
     Dates: start: 20190628, end: 20190902
  25. SODIUM VALPROATE [Concomitant]
     Active Substance: VALPROATE SODIUM
     Dosage: 200 MG, QD
     Route: 048
     Dates: start: 20190628, end: 20190902
  26. DORMICUM [Concomitant]
     Dosage: 2 MG, UNK
     Route: 041
     Dates: start: 20170826, end: 20170828
  27. DORMICUM [Concomitant]
     Dosage: 0.8 ML/H (24 HOURS)
     Dates: start: 20190704, end: 20190705
  28. DIACOMIT [Suspect]
     Active Substance: STIRIPENTOL
     Dosage: 150 MG, QD
     Route: 048
     Dates: start: 20171116, end: 20171220
  29. DIACOMIT [Suspect]
     Active Substance: STIRIPENTOL
     Dosage: 450 MG, QD
     Route: 048
     Dates: start: 20181002
  30. CLOBAZAM. [Concomitant]
     Active Substance: CLOBAZAM
     Dosage: 8 MG, QD
     Route: 048
     Dates: start: 20190628, end: 20190902
  31. SODIUM VALPROATE [Concomitant]
     Active Substance: VALPROATE SODIUM
     Dosage: 150 MG, QD
     Route: 048
     Dates: end: 20190627
  32. FERRIC PYROPHOSPHATE, SOLUBLE [Concomitant]
     Indication: PRODUCT USED FOR UNKNOWN INDICATION
     Route: 048
     Dates: end: 20180211
  33. DORMICUM [Concomitant]
     Dosage: 0.7 MG, UNK
     Route: 041
     Dates: start: 20170823, end: 20170824
  34. DORMICUM [Concomitant]
     Dosage: 2 MG, UNK
     Route: 041
     Dates: start: 20170824, end: 20170824
  35. DIACOMIT [Suspect]
     Active Substance: STIRIPENTOL
     Dosage: 200 MG, QD
     Route: 048
     Dates: start: 20171221, end: 20180207
  36. DIACOMIT [Suspect]
     Active Substance: STIRIPENTOL
     Dosage: 225 MG, QD
     Route: 048
     Dates: start: 20180208, end: 20180314
  37. CLOBAZAM. [Concomitant]
     Active Substance: CLOBAZAM
     Dosage: 6 MG, QD
     Route: 048
     Dates: end: 20190627
  38. SODIUM VALPROATE [Concomitant]
     Active Substance: VALPROATE SODIUM
     Dosage: 125 MG, QD
     Route: 048
     Dates: start: 20171221, end: 20180207
  39. SODIUM VALPROATE [Concomitant]
     Active Substance: VALPROATE SODIUM
     Dosage: 200 MG, QD
     Route: 048
     Dates: start: 20181206
  40. DORMICUM [Concomitant]
     Indication: SEVERE MYOCLONIC EPILEPSY OF INFANCY
     Dosage: 0.6 MG, UNK
     Route: 041
     Dates: start: 20170823, end: 20170823
  41. DORMICUM [Concomitant]
     Dosage: 1.5 MG, UNK
     Route: 041
     Dates: start: 20180825, end: 20180826
  42. DORMICUM [Concomitant]
     Dosage: 2 MG, UNK
     Dates: start: 20190624, end: 20190624
  43. DORMICUM [Concomitant]
     Dosage: 2 ML/H IN 1 HOUR
     Dates: start: 20190624, end: 20190624
  44. SODIUM VALPROATE [Concomitant]
     Active Substance: VALPROATE SODIUM
     Dosage: 100 MG, QD
     Route: 048
     Dates: start: 20170921, end: 20171220
  45. SODIUM VALPROATE [Concomitant]
     Active Substance: VALPROATE SODIUM
     Dosage: 150 MG, QD
     Route: 048
     Dates: start: 20180208, end: 20181205
  46. DORMICUM [Concomitant]
     Dosage: 3 MG, UNK
     Route: 041
     Dates: start: 20170825, end: 20170825
  47. DORMICUM [Concomitant]
     Dosage: 3 MG, UNK
     Route: 041
     Dates: start: 20190624, end: 20190624
  48. DORMICUM [Concomitant]
     Dosage: 1 ML/H (200 HOURS)
     Dates: start: 20190624, end: 20190704
  49. LEVOCARNITINE. [Concomitant]
     Active Substance: LEVOCARNITINE
     Indication: PROPHYLAXIS
     Dosage: 2.5 ML, QD
     Route: 048

REACTIONS (1)
  - Seizure cluster [Recovering/Resolving]

NARRATIVE: CASE EVENT DATE: 20170823
